FAERS Safety Report 5179681-3 (Version None)
Quarter: 2006Q4

REPORT INFORMATION
  Report Type: 
  Country: None (occurrence: None)
  Receive Date: 20061212
  Receipt Date: 20061125
  Transmission Date: 20070319
  Serious: Yes (Other)
  Sender: FDA-Public Use
  Company Number: 233512

PATIENT
  Age: 57 Year
  Sex: Female

DRUGS (5)
  1. AVASTIN [Suspect]
     Indication: DRUG USE FOR UNKNOWN INDICATION
     Dosage: INTRAVENOUS
     Route: 042
     Dates: start: 20060724, end: 20060724
  2. ELOXATIN [Concomitant]
  3. FLUOROURACIL [Concomitant]
  4. LEUCOVORIN CALCIUM [Concomitant]
  5. FILGRASTIM [Concomitant]

REACTIONS (4)
  - ABSCESS [None]
  - FISTULA [None]
  - METASTASES TO CENTRAL NERVOUS SYSTEM [None]
  - NEUTROPENIA [None]
